FAERS Safety Report 15114122 (Version 1)
Quarter: 2018Q3

REPORT INFORMATION
  Report Type: Spontaneous
  Country: CN (occurrence: CN)
  Receive Date: 20180706
  Receipt Date: 20180706
  Transmission Date: 20181010
  Serious: Yes (Other)
  Sender: FDA-Public Use
  Company Number: CN-TELIGENT, INC-IGIL20180361

PATIENT
  Age: 3 Week
  Sex: Female
  Weight: 4.21 kg

DRUGS (2)
  1. CEFTAZIDIME. [Suspect]
     Active Substance: CEFTAZIDIME
     Indication: NEONATAL PNEUMONIA
     Dosage: 0.1 G
     Route: 041
     Dates: start: 20180430, end: 20180504
  2. AMOXICILLIN SODIUM AND SULBACTAM SODIUM [Suspect]
     Active Substance: AMPICILLIN SODIUM\SULBACTAM SODIUM
     Indication: NEONATAL PNEUMONIA
     Dosage: 0.2 G
     Route: 041
     Dates: start: 20180429, end: 20180504

REACTIONS (3)
  - Dermatitis allergic [Recovered/Resolved]
  - Concomitant disease aggravated [Unknown]
  - Generalised erythema [Recovered/Resolved]

NARRATIVE: CASE EVENT DATE: 20180504
